FAERS Safety Report 8470400-1 (Version None)
Quarter: 2012Q2

REPORT INFORMATION
  Report Type: 
  Country: None (occurrence: None)
  Receive Date: 20120627
  Receipt Date: 20120621
  Transmission Date: 20120825
  Serious: No
  Sender: FDA-Public Use
  Company Number: NG-MUTUAL PHARMACEUTICAL COMPANY, INC.-QNSF20120010

PATIENT
  Age: 32 Year
  Sex: Female

DRUGS (3)
  1. QUININE SULFATE [Suspect]
     Indication: MALARIA
     Dates: start: 20090101
  2. PYRIMETHAMINE - SULFONAMIDE [Suspect]
     Indication: MALARIA
     Route: 065
     Dates: start: 20090101
  3. CIPROFLOXACIN [Suspect]
     Indication: MALARIA
     Route: 048
     Dates: start: 20090101

REACTIONS (3)
  - RETINOPATHY [None]
  - SCOTOMA [None]
  - OPTIC NEUROPATHY [None]
